FAERS Safety Report 5050048-1 (Version None)
Quarter: 2006Q2

REPORT INFORMATION
  Report Type: 
  Country: None (occurrence: None)
  Receive Date: 20060601
  Receipt Date: 20060227
  Transmission Date: 20061013
  Serious: No
  Sender: FDA-Public Use
  Company Number: US200602005420

PATIENT
  Sex: Male

DRUGS (6)
  1. CYMBALTA [Suspect]
     Indication: ANXIETY
     Dosage: SEE IMAGE
  2. CYMBALTA [Suspect]
     Indication: ANXIETY
     Dosage: SEE IMAGE
     Dates: start: 20060201
  3. FLUOXETINE /N/A/ (FLUOXETINE) [Concomitant]
  4. DESIPRAMINE HCL [Concomitant]
  5. PREGABALIN (PREGABALIN) [Concomitant]
  6. TRAZODONE HCL [Concomitant]

REACTIONS (4)
  - BACTERIAL INFECTION [None]
  - DIARRHOEA [None]
  - MOOD SWINGS [None]
  - PRESCRIBED OVERDOSE [None]
